FAERS Safety Report 9162805 (Version 2)
Quarter: 2013Q2

REPORT INFORMATION
  Report Type: Spontaneous
  Country: DE (occurrence: DE)
  Receive Date: 20130314
  Receipt Date: 20130426
  Transmission Date: 20140414
  Serious: Yes (Death, Hospitalization, Other)
  Sender: FDA-Public Use
  Company Number: DE-UCBSA-080387

PATIENT
  Age: 80 Year
  Sex: Female

DRUGS (9)
  1. KEPPRA [Suspect]
     Dosage: UNKNOWN DOSE
     Dates: start: 2013, end: 2013
  2. KEPPRA [Suspect]
     Dosage: TEMPORARILY REDUCED DOSE
     Dates: start: 2013, end: 2013
  3. KEPPRA [Suspect]
     Dosage: UPTITRATED DOSE
     Dates: start: 2013
  4. LEVETIRACETAM [Suspect]
     Route: 042
     Dates: end: 201303
  5. VALPROATE [Suspect]
  6. VALPROATE [Suspect]
     Dosage: UPTITRATED EXTREMELY FAST- REACHED 1800 MG/DAY WITHIN A WEEK
     Dates: start: 201303
  7. VALPROATE [Suspect]
     Dosage: DOSE REDUCED TO 300 MG
     Dates: start: 20130328
  8. LEVETIRACETAM (NON UCB) [Suspect]
  9. INSULIN [Concomitant]

REACTIONS (8)
  - Death [Fatal]
  - Convulsion [Unknown]
  - Hypertensive crisis [Unknown]
  - Hyperglycaemia [Unknown]
  - Somnolence [Unknown]
  - Anxiety [Unknown]
  - Speech disorder [Unknown]
  - Bedridden [Unknown]
